FAERS Safety Report 20472233 (Version 2)
Quarter: 2022Q1

REPORT INFORMATION
  Report Type: Spontaneous
  Country: JP (occurrence: JP)
  Receive Date: 20220214
  Receipt Date: 20220310
  Transmission Date: 20220423
  Serious: Yes (Death)
  Sender: FDA-Public Use
  Company Number: JP-JNJFOC-20220230831

PATIENT
  Age: 9 Decade
  Sex: Male

DRUGS (31)
  1. STELARA [Suspect]
     Active Substance: USTEKINUMAB
     Indication: Colitis ulcerative
     Dosage: DOSE UNKNOWN
     Route: 041
     Dates: start: 20211216, end: 20211216
  2. ASPIRIN [Concomitant]
     Active Substance: ASPIRIN
     Dosage: AFTER BREAKFAST
     Route: 048
  3. LIVALO [Concomitant]
     Active Substance: PITAVASTATIN CALCIUM
     Dosage: AFTER BREAKFAST
     Route: 048
  4. AZILSARTAN KAMEDOXOMIL [Concomitant]
     Active Substance: AZILSARTAN KAMEDOXOMIL
     Dosage: AFTER BREAKFAST
     Route: 048
  5. NEXIUM [Concomitant]
     Active Substance: ESOMEPRAZOLE MAGNESIUM
     Dosage: AFTER BREAKFAST
     Route: 048
     Dates: start: 20210607
  6. AMBROXOL HYDROCHLORIDE [Concomitant]
     Active Substance: AMBROXOL HYDROCHLORIDE
     Dosage: AFTER DINNER
     Route: 048
  7. NICORANDIL [Concomitant]
     Active Substance: NICORANDIL
     Dosage: AFTER EACH MEAL
     Route: 048
  8. LIALDA [Concomitant]
     Active Substance: MESALAMINE
     Dosage: AFTER BREAKFAST
     Route: 048
     Dates: start: 20211104
  9. SULFAMETHOXAZOLE\TRIMETHOPRIM [Concomitant]
     Active Substance: SULFAMETHOXAZOLE\TRIMETHOPRIM
     Dosage: MONDAY/WEDNESDAY/FRIDAY, AFTER BREAKFAST
     Route: 048
     Dates: start: 20210618
  10. FERROUS SULFATE [Concomitant]
     Active Substance: FERROUS SULFATE
     Dosage: AFTER BREAKFAST
     Route: 048
     Dates: start: 20211115
  11. AMINO ACIDS\DEXTROSE\ELECTROLYTES NOS\VITAMINS [Concomitant]
     Active Substance: AMINO ACIDS\DEXTROSE\ELECTROLYTES NOS\VITAMINS
     Dosage: DOSE UNKNOWN, AS NECESSARY
     Route: 065
  12. AMINO ACIDS NOS;COPPER;ELECTROLYTES NOS;GLUCOSE;IODINE;IRON;MANGANESE; [Concomitant]
     Dosage: DOSE UNKNOWN, AS NECESSARY
     Route: 065
  13. SOYBEAN OIL [Concomitant]
     Active Substance: SOYBEAN OIL
     Dosage: DOSE UNKNOWN, AS NECESSARY
     Route: 065
  14. SOLYUGEN 1 [Concomitant]
     Dosage: DOSE UNKNOWN, AS NECESSARY
     Route: 065
  15. SOLDEM 3A [Concomitant]
     Active Substance: CARBOHYDRATES\POTASSIUM CHLORIDE\SODIUM CHLORIDE\SODIUM LACTATE
     Dosage: DOSE UNKNOWN, AS NECESSARY
     Route: 065
  16. DEXTROSE [Concomitant]
     Active Substance: DEXTROSE
     Dosage: DOSE UNKNOWN, AS NECESSARY
     Route: 065
  17. ALBUMIN HUMAN [Concomitant]
     Active Substance: ALBUMIN HUMAN
     Dosage: DOSE UNKNOWN, AS NECESSARY
     Route: 065
  18. ACETAMINOPHEN [Concomitant]
     Active Substance: ACETAMINOPHEN
     Dosage: DOSE UNKNOWN, P.R.N
     Route: 065
  19. CALONAL [Concomitant]
     Active Substance: ACETAMINOPHEN
     Dosage: DOSE UNKNOWN, P.R.N
     Route: 065
  20. PENTAZOCINE [Concomitant]
     Active Substance: PENTAZOCINE
     Dosage: DOSE UNKNOWN, P.R.N
     Route: 065
  21. HYDROXYZINE HYDROCHLORIDE [Concomitant]
     Active Substance: HYDROXYZINE HYDROCHLORIDE
     Dosage: DOSE UNKNOWN, P.R.N
     Route: 065
  22. DENOSINE [Concomitant]
     Indication: Cytomegalovirus infection
     Route: 041
     Dates: start: 20210609, end: 20210623
  23. DENOSINE [Concomitant]
     Indication: Cytomegalovirus infection
     Route: 041
     Dates: start: 20210624, end: 20210628
  24. DENOSINE [Concomitant]
     Indication: Cytomegalovirus infection
     Route: 041
     Dates: start: 20210802, end: 20210817
  25. DENOSINE [Concomitant]
     Indication: Cytomegalovirus infection
     Route: 041
     Dates: start: 20210818, end: 20210826
  26. DENOSINE [Concomitant]
     Indication: Cytomegalovirus infection
     Route: 041
     Dates: start: 20210916, end: 20210930
  27. DENOSINE [Concomitant]
     Indication: Cytomegalovirus infection
     Route: 041
     Dates: start: 20211228, end: 20220105
  28. DENOSINE [Concomitant]
     Indication: Cytomegalovirus infection
     Route: 041
     Dates: start: 20220106, end: 20220119
  29. FENTANYL CITRATE [Concomitant]
     Active Substance: FENTANYL CITRATE
     Indication: Pain
     Dosage: DOSE UNKNOWN
     Route: 065
     Dates: start: 20220130
  30. KENKETU GLOVENIN-I [Concomitant]
     Active Substance: HUMAN IMMUNOGLOBULIN G
     Dosage: DOSE UNKNOWN
     Route: 042
     Dates: start: 20220129, end: 20220131
  31. CEFOZOPRAN HYDROCHLORIDE [Concomitant]
     Active Substance: CEFOZOPRAN HYDROCHLORIDE
     Dosage: DOSE UNKNOWN
     Route: 042
     Dates: start: 20220128

REACTIONS (2)
  - Colitis ulcerative [Fatal]
  - Cytomegalovirus enterocolitis [Fatal]
